FAERS Safety Report 6263172-2 (Version None)
Quarter: 2009Q3

REPORT INFORMATION
  Report Type: 
  Country: None (occurrence: None)
  Receive Date: 20090710
  Receipt Date: 20090706
  Transmission Date: 20100115
  Serious: Yes (Life-Threatening, Hospitalization, Disabling)
  Sender: FDA-Public Use
  Company Number: US-JNJFOC-20090702333

PATIENT
  Age: 30 Year
  Sex: Female

DRUGS (2)
  1. LEVAQUIN [Suspect]
     Indication: BRONCHITIS
     Route: 048
  2. ALBUTEROL BY INHALER + NEBULIZER [Concomitant]
     Indication: ASTHMA
     Route: 045

REACTIONS (4)
  - ARTHRALGIA [None]
  - NEURALGIA [None]
  - RESPIRATORY FAILURE [None]
  - WALKING AID USER [None]
